FAERS Safety Report 9788742 (Version 3)
Quarter: 2014Q1

REPORT INFORMATION
  Report Type: Report from Study
  Country: JP (occurrence: JP)
  Receive Date: 20131230
  Receipt Date: 20140313
  Transmission Date: 20141002
  Serious: Yes (Hospitalization)
  Sender: FDA-Public Use
  Company Number: JP-ABBVIE-13P-087-1183901-00

PATIENT
  Age: 77 Year
  Sex: Male
  Weight: 71 kg

DRUGS (5)
  1. LEUPRORELIN DEPOT [Suspect]
     Indication: PROSTATE CANCER
     Route: 058
     Dates: start: 20121221, end: 20130906
  2. BICALUTAMIDE [Concomitant]
     Indication: PROSTATE CANCER
     Route: 048
     Dates: start: 20120622
  3. BAYASPIRIN [Concomitant]
     Indication: PRODUCT USED FOR UNKNOWN INDICATION
  4. ITOROL [Concomitant]
     Indication: PRODUCT USED FOR UNKNOWN INDICATION
  5. CONIEL [Concomitant]
     Indication: PRODUCT USED FOR UNKNOWN INDICATION

REACTIONS (1)
  - Peripheral arterial occlusive disease [Recovering/Resolving]
